FAERS Safety Report 23260290 (Version 4)
Quarter: 2024Q2

REPORT INFORMATION
  Report Type: Report from Study
  Country: US (occurrence: US)
  Receive Date: 20231204
  Receipt Date: 20240624
  Transmission Date: 20240716
  Serious: Yes (Other)
  Sender: FDA-Public Use
  Company Number: US-ABBVIE-5355632

PATIENT
  Sex: Female
  Weight: 69 kg

DRUGS (16)
  1. RINVOQ [Suspect]
     Active Substance: UPADACITINIB
     Indication: Psoriatic arthropathy
     Dosage: LAST ADMINISTRATION DATE: 2023?15 MILLIGRAM BEDTIME
     Route: 048
     Dates: start: 20230428
  2. RINVOQ [Suspect]
     Active Substance: UPADACITINIB
     Indication: Psoriatic arthropathy
     Dosage: LAST ADMINISTRATION DATE: APR 2023?15 MILLIGRAM BEDTIME
     Route: 048
     Dates: start: 20230408
  3. RINVOQ [Suspect]
     Active Substance: UPADACITINIB
     Indication: Psoriatic arthropathy
     Dosage: FIRST ADMINISTRATION DATE- 2023?FORM STRENGTH: 15 MILLIGRAM?BEDTIME
     Route: 048
     Dates: end: 20231108
  4. RINVOQ [Suspect]
     Active Substance: UPADACITINIB
     Indication: Psoriatic arthropathy
     Dosage: LAST ADMIN DATE- APR 2023?15 MILLIGRAM BEDTIME
     Route: 048
     Dates: start: 20230427
  5. RINVOQ [Suspect]
     Active Substance: UPADACITINIB
     Indication: Psoriatic arthropathy
     Dosage: FORM STRENGTH: 15 MILLIGRAM?BEDTIME?RINVOQ INTO TWO WEEKS POST-SURGERY AND THEN RINVOQ 15 MILLIGR...
     Route: 048
     Dates: start: 20231206
  6. METHOTREXATE [Concomitant]
     Active Substance: METHOTREXATE
     Indication: Product used for unknown indication
     Dosage: 20MG ONCE WEEKLY
  7. METHOTREXATE [Concomitant]
     Active Substance: METHOTREXATE
     Indication: Product used for unknown indication
     Dosage: 25 MILLIGRAM
     Route: 058
  8. PREDNISONE [Concomitant]
     Active Substance: PREDNISONE
     Indication: Product used for unknown indication
     Dosage: 5 MG (6 TABS PER DAY INTO A 1 DAY  TAPER 1 TAB EVERY DAY 6/5/4/3/2/1) WITH IMPROVED SYMPTOMS.
  9. LEUCOVORIN [Concomitant]
     Active Substance: LEUCOVORIN\LEUCOVORIN CALCIUM
     Indication: Product used for unknown indication
     Dosage: 10MG WEEKLY 12 HOURS AFTER METHOTREXATE
  10. FOLIC ACID [Concomitant]
     Active Substance: FOLIC ACID
     Indication: Product used for unknown indication
     Dosage: 2MG QD
  11. ORENCIA [Concomitant]
     Active Substance: ABATACEPT
     Indication: Product used for unknown indication
  12. ACTEMRA [Concomitant]
     Active Substance: TOCILIZUMAB
     Indication: Product used for unknown indication
  13. ENBREL [Concomitant]
     Active Substance: BENZYL ALCOHOL\ETANERCEPT
     Indication: Product used for unknown indication
  14. REMICADE [Concomitant]
     Active Substance: INFLIXIMAB
     Indication: Product used for unknown indication
  15. COSENTYX [Concomitant]
     Active Substance: SECUKINUMAB
     Indication: Product used for unknown indication
  16. TALTZ [Concomitant]
     Active Substance: IXEKIZUMAB
     Indication: Product used for unknown indication

REACTIONS (11)
  - Foot operation [Recovering/Resolving]
  - Musculoskeletal stiffness [Unknown]
  - Pain [Recovering/Resolving]
  - Pain in extremity [Unknown]
  - Psoriatic arthropathy [Unknown]
  - Anaemia [Unknown]
  - Blood cholesterol increased [Unknown]
  - Drug ineffective [Unknown]
  - Trigger finger [Unknown]
  - Therapeutic product effect decreased [Unknown]
  - Back pain [Unknown]

NARRATIVE: CASE EVENT DATE: 20230101
